FAERS Safety Report 5341212-2 (Version None)
Quarter: 2007Q2

REPORT INFORMATION
  Report Type: 
  Country: None (occurrence: None)
  Receive Date: 20070405
  Receipt Date: 20070111
  Transmission Date: 20071010
  Serious: No
  Sender: FDA-Public Use
  Company Number: US200701002342

PATIENT
  Age: 53 Year
  Sex: Female

DRUGS (4)
  1. CYMBALTA [Suspect]
     Indication: ANXIETY
     Dosage: 50 MG, DAILY (1/D)
     Dates: start: 20060801
  2. MAXALT [Concomitant]
  3. CONJUGATED ESTROGENS [Concomitant]
  4. NEURONTIN [Concomitant]

REACTIONS (3)
  - CONSTIPATION [None]
  - MIGRAINE [None]
  - THIRST [None]
